FAERS Safety Report 5065398-2 (Version None)
Quarter: 2006Q3

REPORT INFORMATION
  Report Type: 
  Country: None (occurrence: None)
  Receive Date: 20060731
  Receipt Date: 20060724
  Transmission Date: 20061208
  Serious: Yes (Death, Hospitalization)
  Sender: FDA-Public Use
  Company Number: JP-AVENTIS-200612339JP

PATIENT
  Age: 77 Year
  Sex: Male

DRUGS (7)
  1. ARAVA [Suspect]
     Indication: RHEUMATOID ARTHRITIS
     Route: 048
     Dates: start: 20040301
  2. FOSAMAC TABLETS [Concomitant]
  3. GASTER [Concomitant]
  4. PROMAC                                  /JPN/ [Concomitant]
  5. URSO [Concomitant]
  6. PREDNISOLONE [Concomitant]
     Dosage: DOSE: 4/DAY
  7. HERBAL PREPARATION [Concomitant]

REACTIONS (1)
  - PANCREATIC CARCINOMA [None]
